FAERS Safety Report 8834036 (Version 1)
Quarter: 2012Q4

REPORT INFORMATION
  Report Type: 
  Country: US (occurrence: US)
  Receive Date: 20121010
  Receipt Date: 20121010
  Transmission Date: 20130627
  Serious: No
  Sender: FDA-Public Use
  Company Number: US-009507513-1210USA003894

PATIENT
  Age: 20 Year
  Sex: Female
  Weight: 90.7 kg

DRUGS (1)
  1. NEXPLANON [Suspect]
     Dosage: 1 DF, every 3 years
     Route: 059
     Dates: start: 20120307

REACTIONS (3)
  - Limb discomfort [Unknown]
  - Device breakage [Unknown]
  - Product quality issue [Unknown]
